FAERS Safety Report 13790107 (Version 1)
Quarter: 2017Q3

REPORT INFORMATION
  Report Type: Spontaneous
  Country: FR (occurrence: FR)
  Receive Date: 20170725
  Receipt Date: 20170725
  Transmission Date: 20171127
  Serious: Yes (Hospitalization)
  Sender: FDA-Public Use
  Company Number: FR-JNJFOC-20170716574

PATIENT
  Age: 43 Year
  Sex: Female

DRUGS (7)
  1. RISPERDAL [Suspect]
     Active Substance: RISPERIDONE
     Indication: BRIEF PSYCHOTIC DISORDER WITH MARKED STRESSORS
     Route: 048
     Dates: end: 20170323
  2. XEPLION [Interacting]
     Active Substance: PALIPERIDONE PALMITATE
     Indication: BRIEF PSYCHOTIC DISORDER WITH MARKED STRESSORS
     Route: 030
     Dates: start: 20170324
  3. THERALENE [Interacting]
     Active Substance: TRIMEPRAZINE
     Indication: BRIEF PSYCHOTIC DISORDER WITH MARKED STRESSORS
     Dosage: 20 DROPS; STRENGTH: 4 PERCENT
     Route: 048
  4. XEPLION [Interacting]
     Active Substance: PALIPERIDONE PALMITATE
     Indication: BRIEF PSYCHOTIC DISORDER WITH MARKED STRESSORS
     Route: 030
     Dates: start: 20170317
  5. SIMVASTATINE [Concomitant]
     Active Substance: SIMVASTATIN
     Route: 048
     Dates: start: 20170220
  6. KARDEGIC [Concomitant]
     Active Substance: ASPIRIN LYSINE
     Route: 048
  7. CORGARD [Concomitant]
     Active Substance: NADOLOL
     Route: 048
     Dates: start: 20170225

REACTIONS (5)
  - Product use in unapproved indication [Unknown]
  - Confusional state [Recovered/Resolved]
  - Incorrect dose administered [Unknown]
  - Drug interaction [Unknown]
  - Off label use [Unknown]

NARRATIVE: CASE EVENT DATE: 20170317
